FAERS Safety Report 5838405-4 (Version None)
Quarter: 2008Q3

REPORT INFORMATION
  Report Type: 
  Country: None (occurrence: None)
  Receive Date: 20080806
  Receipt Date: 20080721
  Transmission Date: 20090109
  Serious: Yes (Death)
  Sender: FDA-Public Use
  Company Number: 2008S1000242

PATIENT
  Age: 78 Year
  Sex: Female
  Weight: 50.5 kg

DRUGS (6)
  1. CUBICIN [Suspect]
     Indication: OSTEOMYELITIS
     Dosage: 5.9 MG/KG; Q48H; IV
     Route: 042
     Dates: start: 20080716, end: 20080718
  2. DIGOXIN [Concomitant]
  3. FUROSEMIDE [Concomitant]
  4. LISINOPRIL [Concomitant]
  5. METOPROLOL TARTRATE [Concomitant]
  6. ASPIRIN [Concomitant]

REACTIONS (3)
  - BODY TEMPERATURE DECREASED [None]
  - HAEMATOCRIT DECREASED [None]
  - HAEMOGLOBIN DECREASED [None]
